FAERS Safety Report 8959685 (Version 1)
Quarter: 2012Q4

REPORT INFORMATION
  Report Type: 
  Country: US (occurrence: US)
  Receive Date: 20121212
  Receipt Date: 20121212
  Transmission Date: 20130627
  Serious: Yes (Hospitalization, Other)
  Sender: FDA-Public Use
  Company Number: US-AMGEN-USASP2012078146

PATIENT
  Age: 77 Year
  Sex: Female

DRUGS (1)
  1. ENBREL [Suspect]
     Indication: RHEUMATOID ARTHRITIS
     Dosage: UNK

REACTIONS (7)
  - Myocardial infarction [Recovered/Resolved]
  - Abdominal pain [Recovered/Resolved]
  - Rib fracture [Unknown]
  - Spinal fracture [Unknown]
  - Gallbladder operation [Recovered/Resolved]
  - Cholelithotomy [Recovered/Resolved]
  - Fall [Unknown]
